FAERS Safety Report 9387229 (Version 1)
Quarter: 2013Q3

REPORT INFORMATION
  Report Type: Spontaneous
  Country: GB (occurrence: GB)
  Receive Date: 20130708
  Receipt Date: 20130708
  Transmission Date: 20140515
  Serious: Yes (Hospitalization)
  Sender: FDA-Public Use
  Company Number: GB-JNJFOC-20130617494

PATIENT
  Age: 76 Year
  Sex: Male

DRUGS (6)
  1. ABIRATERONE [Suspect]
     Indication: PROSTATE CANCER
     Dosage: 1000 MG
     Route: 048
     Dates: start: 20130504, end: 20130601
  2. AMIODARONE [Concomitant]
     Route: 065
  3. ASPIRIN [Concomitant]
     Route: 065
  4. BISOPROLOL [Concomitant]
     Route: 065
  5. PERINDOPRIL [Concomitant]
     Route: 065
  6. PREDNISOLONE [Concomitant]
     Route: 048

REACTIONS (5)
  - Atrial fibrillation [Recovering/Resolving]
  - Condition aggravated [Recovering/Resolving]
  - Heart rate increased [Unknown]
  - Pulmonary embolism [Unknown]
  - Deep vein thrombosis [Unknown]
